FAERS Safety Report 7217903-5 (Version None)
Quarter: 2011Q1

REPORT INFORMATION
  Report Type: 
  Country: None (occurrence: None)
  Receive Date: 20110110
  Receipt Date: 20101231
  Transmission Date: 20110831
  Serious: Yes (Hospitalization)
  Sender: FDA-Public Use
  Company Number: US-ABBOTT-10P-163-0641307-00

PATIENT
  Age: 65 Year
  Sex: Male

DRUGS (5)
  1. ASPIRIN [Concomitant]
     Indication: PRODUCT USED FOR UNKNOWN INDICATION
  2. LEUPROLIDE ACETATE [Suspect]
     Indication: PROSTATIC SPECIFIC ANTIGEN INCREASED
     Dosage: ONCE
     Route: 058
  3. MULTI-VITAMIN [Concomitant]
     Indication: PRODUCT USED FOR UNKNOWN INDICATION
  4. LORATADINE [Concomitant]
     Indication: PRODUCT USED FOR UNKNOWN INDICATION
  5. FISH OIL [Concomitant]
     Indication: PRODUCT USED FOR UNKNOWN INDICATION

REACTIONS (2)
  - PSYCHOTIC DISORDER [None]
  - MANIA [None]
